FAERS Safety Report 14659029 (Version 1)
Quarter: 2018Q1

REPORT INFORMATION
  Report Type: Report from Study
  Country: None (occurrence: US)
  Receive Date: 20180320
  Receipt Date: 20180320
  Transmission Date: 20180509
  Serious: Yes (Other)
  Sender: FDA-Public Use
  Company Number: US-ABBVIE-16K-163-1755312-00

PATIENT
  Age: 67 Year
  Sex: Female
  Weight: 78.54 kg

DRUGS (15)
  1. HUMIRA [Suspect]
     Active Substance: ADALIMUMAB
     Indication: COLITIS ULCERATIVE
     Route: 058
     Dates: start: 201501, end: 2017
  2. HUMIRA [Suspect]
     Active Substance: ADALIMUMAB
     Indication: COLITIS ULCERATIVE
     Route: 058
     Dates: start: 201604
  3. PREDNISONE. [Suspect]
     Active Substance: PREDNISONE
     Indication: COLITIS
     Route: 065
  4. CELEBREX [Concomitant]
     Active Substance: CELECOXIB
     Indication: OSTEOARTHRITIS
  5. HUMIRA [Suspect]
     Active Substance: ADALIMUMAB
     Indication: CROHN^S DISEASE
     Route: 058
  6. HUMIRA [Suspect]
     Active Substance: ADALIMUMAB
     Route: 058
     Dates: start: 2017
  7. LEVOTHYROXINE. [Concomitant]
     Active Substance: LEVOTHYROXINE
     Indication: HYPOTHYROIDISM
     Route: 065
     Dates: start: 2017
  8. HYDROCHLOROTHIAZIDE. [Concomitant]
     Active Substance: HYDROCHLOROTHIAZIDE
     Indication: FLUID RETENTION
  9. ALENDRONIC ACID [Concomitant]
     Active Substance: ALENDRONIC ACID
     Indication: COLITIS ULCERATIVE
  10. AMLODIPINE [Concomitant]
     Active Substance: AMLODIPINE BESYLATE
     Indication: HYPERTENSION
  11. SERTRALINE [Concomitant]
     Active Substance: SERTRALINE HYDROCHLORIDE
     Indication: DEPRESSION
  12. SIMVASTATIN. [Concomitant]
     Active Substance: SIMVASTATIN
     Indication: BLOOD CHOLESTEROL INCREASED
  13. POTASSIUM [Concomitant]
     Active Substance: POTASSIUM
     Indication: MUSCLE SPASMS
  14. KLOR-CON [Concomitant]
     Active Substance: POTASSIUM CHLORIDE
     Indication: HYPOKALAEMIA
  15. ALENDRONATE [Concomitant]
     Active Substance: ALENDRONATE SODIUM
     Indication: OSTEOPOROSIS

REACTIONS (35)
  - Colon injury [Unknown]
  - Allergy to vaccine [Recovered/Resolved with Sequelae]
  - Fatigue [Not Recovered/Not Resolved]
  - Gastrointestinal oedema [Recovering/Resolving]
  - Gastrointestinal pain [Unknown]
  - Abdominal adhesions [Recovered/Resolved]
  - Thyroid cancer [Recovered/Resolved]
  - Colitis ulcerative [Recovered/Resolved]
  - Dizziness [Recovering/Resolving]
  - Night sweats [Not Recovered/Not Resolved]
  - Muscle spasms [Unknown]
  - Hypotension [Recovering/Resolving]
  - Fall [Not Recovered/Not Resolved]
  - Large intestinal stenosis [Unknown]
  - Osteoporosis [Unknown]
  - Spinal fracture [Unknown]
  - Large intestinal haemorrhage [Unknown]
  - Allergic oedema [Recovered/Resolved with Sequelae]
  - Large intestine polyp [Unknown]
  - Blood pressure increased [Recovered/Resolved]
  - Erythema [Recovered/Resolved with Sequelae]
  - Colitis [Recovering/Resolving]
  - Cystitis [Not Recovered/Not Resolved]
  - Pruritus allergic [Recovered/Resolved with Sequelae]
  - Blood test abnormal [Recovering/Resolving]
  - Abdominal adhesions [Not Recovered/Not Resolved]
  - Kidney infection [Not Recovered/Not Resolved]
  - Vomiting [Recovering/Resolving]
  - Rectal stenosis [Unknown]
  - Rectal discharge [Unknown]
  - Fatigue [Recovered/Resolved]
  - Dyschezia [Not Recovered/Not Resolved]
  - Dehydration [Not Recovered/Not Resolved]
  - Rectal haemorrhage [Recovered/Resolved]
  - Crohn^s disease [Recovering/Resolving]

NARRATIVE: CASE EVENT DATE: 201601
